FAERS Safety Report 8916343 (Version 5)
Quarter: 2013Q4

REPORT INFORMATION
  Report Type: Spontaneous
  Country: US (occurrence: US)
  Receive Date: 20121120
  Receipt Date: 20131011
  Transmission Date: 20140711
  Serious: Yes (Hospitalization, Other)
  Sender: FDA-Public Use
  Company Number: US-009507513-1211USA008011

PATIENT
  Sex: 0
  Weight: 57.6 kg

DRUGS (9)
  1. NUVARING [Suspect]
     Indication: CONTRACEPTION
     Dosage: UNK
     Route: 067
     Dates: start: 200405, end: 200411
  2. NUVARING [Suspect]
     Indication: MENSTRUATION IRREGULAR
  3. NORVASC [Concomitant]
     Indication: HYPERTENSION
     Dosage: 10 MG, UNK
     Route: 048
     Dates: start: 2003
  4. IBUPROFEN [Concomitant]
     Dosage: 800 MG, UNK
     Route: 048
     Dates: start: 200410
  5. ALLEGRA [Concomitant]
     Indication: HYPERSENSITIVITY
     Dosage: 180 MG, UNK
     Route: 048
     Dates: start: 200410
  6. PREVACID [Concomitant]
     Dosage: 30 MG, UNK
     Route: 048
     Dates: start: 200410
  7. GUAIFENESIN [Concomitant]
     Indication: COUGH
     Dosage: UNK
     Route: 048
     Dates: start: 200410
  8. CELEBREX [Suspect]
     Dosage: UNK
     Route: 048
     Dates: start: 200410
  9. BENZONATATE [Concomitant]
     Indication: COUGH
     Dosage: UNK
     Route: 048
     Dates: start: 200410

REACTIONS (9)
  - Haemorrhage [Unknown]
  - Pulmonary embolism [Recovered/Resolved]
  - Hiatus hernia [Unknown]
  - Ovarian cyst [Unknown]
  - Infection [Unknown]
  - Constipation [Unknown]
  - Arthritis [Unknown]
  - Venous insufficiency [Unknown]
  - Stress [Unknown]
